FAERS Safety Report 7493871-6 (Version None)
Quarter: 2011Q2

REPORT INFORMATION
  Report Type: 
  Country: None (occurrence: None)
  Receive Date: 20110519
  Receipt Date: 20110519
  Transmission Date: 20111010
  Serious: No
  Sender: FDA-Public Use
  Company Number: None

PATIENT
  Sex: Female
  Weight: 72.5755 kg

DRUGS (2)
  1. SERTRALINE HYDROCHLORIDE [Suspect]
     Indication: DRUG INEFFECTIVE
     Dosage: ZOLOFT 100MG 1 1/2 DAILY PO
     Route: 048
  2. SERTRALINE HYDROCHLORIDE [Suspect]
     Indication: ATTENTION DEFICIT/HYPERACTIVITY DISORDER
     Dosage: ZOLOFT 100MG 1 1/2 DAILY PO
     Route: 048

REACTIONS (1)
  - DRUG INTOLERANCE [None]
